FAERS Safety Report 10084217 (Version 3)
Quarter: 2015Q1

REPORT INFORMATION
  Report Type: Spontaneous
  Country: US (occurrence: US)
  Receive Date: 20140417
  Receipt Date: 20150302
  Transmission Date: 20150720
  Serious: Yes (Hospitalization)
  Sender: FDA-Public Use
  Company Number: US-BAYER-2014-054938

PATIENT
  Age: 28 Year
  Sex: Female
  Weight: 68.93 kg

DRUGS (3)
  1. MIRENA [Suspect]
     Active Substance: LEVONORGESTREL
     Indication: CONTRACEPTION
     Dosage: 20 MCG/24HR, CONT
     Route: 015
     Dates: start: 201209, end: 20130116
  2. ACYCLOVIR [ACICLOVIR] [Concomitant]
     Active Substance: ACYCLOVIR
     Dosage: 400 MG, BID
     Route: 048
     Dates: start: 20121126
  3. DIFLUCAN [Concomitant]
     Active Substance: FLUCONAZOLE
     Dosage: 200 MG; 150 MG EVERY DAY
     Route: 048
     Dates: start: 20120925

REACTIONS (6)
  - Pain [None]
  - Device dislocation [None]
  - Device issue [None]
  - Emotional distress [None]
  - Injury [None]
  - Device dislocation [None]

NARRATIVE: CASE EVENT DATE: 201211
